FAERS Safety Report 19115953 (Version 1)
Quarter: 2021Q2

REPORT INFORMATION
  Report Type: Spontaneous
  Country: US (occurrence: US)
  Receive Date: 20210409
  Receipt Date: 20210409
  Transmission Date: 20210717
  Serious: No
  Sender: FDA-Public Use
  Company Number: US-SA-2021SA115255

PATIENT
  Age: 58 Year
  Sex: Female

DRUGS (10)
  1. AQUAPHOR [Concomitant]
     Active Substance: PETROLATUM
  2. DUPIXENT [Suspect]
     Active Substance: DUPILUMAB
     Indication: DERMATITIS
     Dosage: 300 MG, QOW
     Route: 058
     Dates: start: 20210206
  3. LIDEX [Concomitant]
     Active Substance: FLUOCINONIDE
  4. CARMOL [UREA] [Concomitant]
  5. FLONASE [Concomitant]
     Active Substance: FLUTICASONE PROPIONATE
  6. ZYRTEC [Concomitant]
     Active Substance: CETIRIZINE HYDROCHLORIDE
  7. TEMOVATE [Concomitant]
     Active Substance: CLOBETASOL PROPIONATE
  8. MYCOSTATIN [Concomitant]
     Active Substance: NYSTATIN
  9. DITROPAN [Concomitant]
     Active Substance: OXYBUTYNIN CHLORIDE
  10. ATARAX [ALPRAZOLAM] [Concomitant]
     Active Substance: ALPRAZOLAM

REACTIONS (2)
  - Urinary tract infection [Unknown]
  - Pruritus [Recovered/Resolved]
